FAERS Safety Report 13268278 (Version 2)
Quarter: 2017Q1

REPORT INFORMATION
  Report Type: Spontaneous
  Country: IT (occurrence: IT)
  Receive Date: 20170224
  Receipt Date: 20170303
  Transmission Date: 20170428
  Serious: Yes (Other)
  Sender: FDA-Public Use
  Company Number: IT-PFIZER INC-2017077987

PATIENT
  Age: 59 Year
  Sex: Male
  Weight: 60 kg

DRUGS (5)
  1. CLOPIXOL /00876702/ [Suspect]
     Active Substance: ZUCLOPENTHIXOL ACETATE
     Dosage: 2 % GTT
     Route: 048
  2. LORAZEPAM. [Suspect]
     Active Substance: LORAZEPAM
     Dosage: UNK
  3. HALDOL DECANOAS [Suspect]
     Active Substance: HALOPERIDOL DECANOATE
     Dosage: UNK MG/ML, UNK
     Route: 030
  4. ROCEFIN [Suspect]
     Active Substance: CEFTRIAXONE SODIUM
     Dosage: UNK
  5. TOLEP [Suspect]
     Active Substance: OXCARBAZEPINE
     Dosage: 300 MG, UNK

REACTIONS (3)
  - Rhabdomyolysis [Unknown]
  - Coma [Unknown]
  - Hyperthermia [Unknown]

NARRATIVE: CASE EVENT DATE: 20170130
